FAERS Safety Report 23573823 (Version 1)
Quarter: 2024Q1

REPORT INFORMATION
  Report Type: Spontaneous
  Country: FR (occurrence: FR)
  Receive Date: 20240228
  Receipt Date: 20240228
  Transmission Date: 20240410
  Serious: Yes (Hospitalization, Other)
  Sender: FDA-Public Use
  Company Number: FR-AFSSAPS-TO2024000313

PATIENT
  Age: 81 Year
  Sex: Female
  Weight: 70 kg

DRUGS (2)
  1. SPIRONOLACTONE [Suspect]
     Active Substance: SPIRONOLACTONE
     Indication: Oedema peripheral
     Dosage: 0.5 DOSAGE FORM, ONCE A DAY, 25 MG/15 MG 0-0.5--0
     Route: 048
     Dates: start: 202301, end: 20230623
  2. BUMETANIDE [Suspect]
     Active Substance: BUMETANIDE
     Indication: Cardiac failure
     Dosage: 5 MILLIGRAM, ONCE A DAY, LONG COURS
     Route: 048
     Dates: end: 20230623

REACTIONS (2)
  - Chronic kidney disease [Recovering/Resolving]
  - Hypokalaemia [Recovered/Resolved]

NARRATIVE: CASE EVENT DATE: 20230622
